FAERS Safety Report 19277999 (Version 1)
Quarter: 2021Q2

REPORT INFORMATION
  Report Type: Spontaneous
  Country: GR (occurrence: GR)
  Receive Date: 20210520
  Receipt Date: 20210520
  Transmission Date: 20210717
  Serious: Yes (Hospitalization)
  Sender: FDA-Public Use
  Company Number: GR-SUN PHARMACEUTICAL INDUSTRIES LTD-2021R1-297120

PATIENT
  Age: 79 Year
  Sex: Male

DRUGS (3)
  1. AZITHROMYCINE [Suspect]
     Active Substance: AZITHROMYCIN
     Indication: SARS-COV-2 RNA
     Route: 065
  2. HYDROXYCHLOROQUINE [Suspect]
     Active Substance: HYDROXYCHLOROQUINE
     Indication: SARS-COV-2 RNA
     Route: 065
  3. CEFTAROLINE [Suspect]
     Active Substance: CEFTAROLINE
     Indication: SARS-COV-2 RNA
     Route: 065

REACTIONS (1)
  - Disease progression [Unknown]
